FAERS Safety Report 6634733-3 (Version None)
Quarter: 2010Q1

REPORT INFORMATION
  Report Type: 
  Country: None (occurrence: None)
  Receive Date: 20100315
  Receipt Date: 20100304
  Transmission Date: 20100710
  Serious: Yes (Other)
  Sender: FDA-Public Use
  Company Number: CA-JNJFOC-20100302139

PATIENT
  Sex: Male
  Weight: 96.8 kg

DRUGS (4)
  1. REMICADE [Suspect]
     Indication: CROHN'S DISEASE
     Dosage: TO THE PRESENT
     Route: 042
  2. IMURAN [Concomitant]
     Route: 048
  3. VITAMIN B-12 [Concomitant]
  4. PREVACID [Concomitant]

REACTIONS (2)
  - DYSPNOEA EXERTIONAL [None]
  - WEIGHT INCREASED [None]
